FAERS Safety Report 8302452 (Version 2)
Quarter: 2013Q1

REPORT INFORMATION
  Report Type: Spontaneous
  Country: GB (occurrence: GB)
  Receive Date: 20111220
  Receipt Date: 20130321
  Transmission Date: 20140127
  Serious: Yes (Life-Threatening, Hospitalization)
  Sender: FDA-Public Use
  Company Number: GB-PFIZER INC-2011307370

PATIENT
  Age: 40 Year
  Sex: Male
  Weight: 78 kg

DRUGS (8)
  1. CHAMPIX [Suspect]
     Indication: SMOKING CESSATION THERAPY
     Route: 048
  2. FLUOXETINE HCL [Suspect]
     Indication: ANXIETY
     Dosage: 20 MG, UNK
     Route: 048
     Dates: start: 20111003
  3. ACIDEX [Concomitant]
  4. ASPIRIN [Concomitant]
  5. DOXAZOSIN MESILATE [Concomitant]
  6. EPROSARTAN [Concomitant]
  7. FELODIPINE [Concomitant]
  8. LANSOPRAZOLE [Concomitant]

REACTIONS (9)
  - Aortic thrombosis [Unknown]
  - Embolism [Unknown]
  - Ischaemic nephropathy [Unknown]
  - Intestinal ischaemia [Unknown]
  - Peripheral ischaemia [Unknown]
  - Coagulopathy [Not Recovered/Not Resolved]
  - Abdominal pain [Unknown]
  - Nausea [Unknown]
  - Vomiting [Unknown]
